FAERS Safety Report 4325281-4 (Version None)
Quarter: 2004Q1

REPORT INFORMATION
  Report Type: 
  Country: None (occurrence: None)
  Receive Date: 20040324
  Receipt Date: 20040310
  Transmission Date: 20041129
  Serious: Yes (Death)
  Sender: FDA-Public Use
  Company Number: 2004017397

PATIENT
  Age: 72 Year
  Sex: Male

DRUGS (1)
  1. DIFLUCAN [Suspect]
     Indication: ANTIFUNGAL PROPHYLAXIS

REACTIONS (5)
  - FUNGAEMIA [None]
  - PANCYTOPENIA [None]
  - PNEUMONIA [None]
  - RASH GENERALISED [None]
  - TRICHOSPORON INFECTION [None]
